FAERS Safety Report 4556137-X (Version None)
Quarter: 2005Q1

REPORT INFORMATION
  Report Type: 
  Country: None (occurrence: None)
  Receive Date: 20050114
  Receipt Date: 20050105
  Transmission Date: 20050727
  Serious: Yes (Death)
  Sender: FDA-Public Use
  Company Number: 2005006572

PATIENT
  Age: 68 Year
  Sex: Male
  Weight: 84 kg

DRUGS (19)
  1. DOXORUBICIN HCL [Suspect]
     Indication: NON-HODGKIN'S LYMPHOMA
     Dosage: 100 MG
     Dates: start: 20031016, end: 20031127
  2. CYTARABINE [Suspect]
     Indication: NON-HODGKIN'S LYMPHOMA
     Dosage: 4000 MG (1 GRAM), INTRAVENOUS
     Route: 042
     Dates: start: 20031222, end: 20040218
  3. VINCRISTINE [Suspect]
     Indication: NON-HODGKIN'S LYMPHOMA
     Dosage: 2 MG (INTRAVENOUS)
     Route: 042
     Dates: start: 20031016, end: 20031127
  4. VINCRISTINE [Suspect]
     Indication: NON-HODGKIN'S LYMPHOMA
     Dosage: 80 MG (100 MG) INTRAVENOUS
     Route: 042
     Dates: start: 20031016, end: 20031127
  5. CISPLATIN [Suspect]
     Indication: NON-HODGKIN'S LYMPHOMA
     Dosage: 200 MG (10 MG), INTRAVENOUS
     Route: 042
     Dates: start: 20031222, end: 20040218
  6. RITUXIMAB (RITUXIMAB) [Suspect]
     Indication: NON-HODGKIN'S LYMPHOMA
     Dosage: 750 MG
     Dates: start: 20031016, end: 20040216
  7. DEXAMETHASONE [Concomitant]
  8. METHYLPREDNISOLONE [Concomitant]
  9. PREDNISONE [Concomitant]
  10. PEGFILGRASTIM (PEGFILGRASTIM) [Concomitant]
  11. ONDANSETRON HCL [Concomitant]
  12. RASBURICASE (RASBURICASE) [Concomitant]
  13. ACETAMINOPHEN [Concomitant]
  14. DEXCHLORPHENIRAMINE (DEXCHLORPHENIRAMINE) [Concomitant]
  15. CELIPROLOL (CELIPROLOL) [Concomitant]
  16. RAMIPRIL [Concomitant]
  17. SERENOA REPENS (SERENOA REPENS) [Concomitant]
  18. TERAZOSIN (TERAZOSIN) [Concomitant]
  19. ASPIRIN [Concomitant]

REACTIONS (3)
  - DISEASE PROGRESSION [None]
  - PCO2 DECREASED [None]
  - PULMONARY FIBROSIS [None]
